FAERS Safety Report 18100402 (Version 6)
Quarter: 2020Q4

REPORT INFORMATION
  Report Type: Report from Study
  Country: IT (occurrence: IT)
  Receive Date: 20200731
  Receipt Date: 20201110
  Transmission Date: 20210113
  Serious: Yes (Hospitalization)
  Sender: FDA-Public Use
  Company Number: IT-EXELIXIS-XL18420031653

PATIENT
  Age: 53 Year
  Sex: Male
  Weight: 70 kg

DRUGS (12)
  1. CB-839 [Suspect]
     Active Substance: TELAGLENASTAT
     Dosage: 600 MG, BID
     Route: 048
     Dates: start: 20200512, end: 20200715
  2. DIBASE [Concomitant]
     Active Substance: CHOLECALCIFEROL
     Indication: VITAMIN D DEFICIENCY
     Dosage: 50000 [IU], Q2WEEKS
     Route: 048
     Dates: start: 20200512
  3. TIROSINT [Concomitant]
     Active Substance: LEVOTHYROXINE SODIUM
     Indication: HYPOTHYROIDISM
     Dosage: 150 UG, QD
     Route: 048
     Dates: start: 20200429
  4. PHOSPHORUS [Concomitant]
     Active Substance: PHOSPHORUS
     Indication: BLOOD PHOSPHORUS DECREASED
     Dosage: 1 {DF}, QOD
     Route: 048
     Dates: end: 20200728
  5. KCL-RETARD [Concomitant]
     Active Substance: POTASSIUM CHLORIDE
     Indication: BLOOD POTASSIUM DECREASED
     Dosage: 2 {DF}, QD
     Route: 048
     Dates: end: 20200728
  6. CABOZANTINIB [Suspect]
     Active Substance: CABOZANTINIB
     Indication: CLEAR CELL RENAL CELL CARCINOMA
     Dosage: 60 MG, QD
     Route: 048
     Dates: start: 20190805, end: 20200127
  7. CABOZANTINIB [Suspect]
     Active Substance: CABOZANTINIB
     Dosage: 40 MG, QD
     Route: 048
     Dates: start: 20200127, end: 20200715
  8. CABOZANTINIB [Suspect]
     Active Substance: CABOZANTINIB
     Dosage: 40 MG, QD
     Route: 048
     Dates: start: 20200728
  9. CB-839 [Suspect]
     Active Substance: TELAGLENASTAT
     Indication: CLEAR CELL RENAL CELL CARCINOMA
     Dosage: 800 MG, BID
     Route: 048
     Dates: start: 20190805, end: 20200512
  10. PHOSPHORUS [Concomitant]
     Active Substance: PHOSPHORUS
     Indication: BLOOD PHOSPHORUS DECREASED
  11. ROCALTROL [Concomitant]
     Active Substance: CALCITRIOL
     Indication: VITAMIN D DEFICIENCY
     Dosage: 0.5 UG, QD
     Route: 048
     Dates: start: 20200512
  12. MAG 2 [Concomitant]
     Active Substance: MAGNESIUM
     Indication: BLOOD MAGNESIUM DECREASED
     Dosage: 1 SACHET
     Route: 048
     Dates: end: 20200728

REACTIONS (2)
  - Hypokalaemia [Recovered/Resolved]
  - Ventricular tachycardia [Recovered/Resolved]

NARRATIVE: CASE EVENT DATE: 20200718
